FAERS Safety Report 15592477 (Version 1)
Quarter: 2018Q4

REPORT INFORMATION
  Report Type: Spontaneous
  Country: FR (occurrence: FR)
  Receive Date: 20181106
  Receipt Date: 20181106
  Transmission Date: 20190205
  Serious: Yes (Death)
  Sender: FDA-Public Use
  Company Number: FR-MYLANLABS-2018M1082425

PATIENT
  Age: 34 Year
  Sex: Male

DRUGS (3)
  1. TRAMADOL. [Suspect]
     Active Substance: TRAMADOL
     Indication: TONSILLITIS
     Dosage: UNK
     Route: 048
  2. CLAMOXYL                           /00249602/ [Suspect]
     Active Substance: AMOXICILLIN
     Indication: TONSILLITIS
     Dosage: 3 G, UNK
     Route: 048
  3. PARACETAMOL [Suspect]
     Active Substance: ACETAMINOPHEN
     Indication: TONSILLITIS
     Dosage: 3G
     Route: 048

REACTIONS (1)
  - Cardio-respiratory arrest [Fatal]

NARRATIVE: CASE EVENT DATE: 20180125
